FAERS Safety Report 24439519 (Version 4)
Quarter: 2025Q2

REPORT INFORMATION
  Report Type: Report from Study
  Country: US (occurrence: US)
  Receive Date: 20241015
  Receipt Date: 20250530
  Transmission Date: 20250717
  Serious: Yes (Hospitalization, Other)
  Sender: SUNOVION
  Company Number: US-SUMITOMO PHARMA SWITZERLAND GMBH-2024SPA003600

PATIENT

DRUGS (1)
  1. ORGOVYX [Suspect]
     Active Substance: RELUGOLIX
     Indication: Prostate cancer
     Dosage: 120 MG, QD
     Route: 048
     Dates: start: 20240829

REACTIONS (6)
  - Heart rate increased [Unknown]
  - Urinary retention [Unknown]
  - Transfusion [Unknown]
  - Catheter placement [Unknown]
  - Incorrect dose administered [Unknown]
  - Therapy interrupted [Unknown]
